FAERS Safety Report 4756193-X (Version None)
Quarter: 2005Q3

REPORT INFORMATION
  Report Type: 
  Country: None (occurrence: None)
  Receive Date: 20050830
  Receipt Date: 20050503
  Transmission Date: 20060218
  Serious: No
  Sender: FDA-Public Use
  Company Number: US-GLAXOSMITHKLINE-A0557095A

PATIENT
  Sex: Male

DRUGS (15)
  1. WELLBUTRIN XL [Suspect]
     Indication: DEPRESSION
     Dosage: 300MG PER DAY
     Route: 048
     Dates: start: 20050317
  2. MULTI-VITAMINS [Concomitant]
  3. SAW PALMETTO [Concomitant]
  4. VITAMIN E [Concomitant]
  5. ASCORBIC ACID [Concomitant]
  6. MAGNESIUM [Concomitant]
  7. CALCIUM GLUCONATE [Concomitant]
  8. GRAPE SEED [Concomitant]
  9. ECOTRIN [Concomitant]
  10. LECITHIN [Concomitant]
  11. MSM [Concomitant]
  12. FISH OIL [Concomitant]
  13. GLUCOSAMINE [Concomitant]
  14. GARLIC [Concomitant]
  15. HYDROCHLOROTHIAZIDE [Concomitant]

REACTIONS (1)
  - DYSURIA [None]
